FAERS Safety Report 10037542 (Version 2)
Quarter: 2014Q1

REPORT INFORMATION
  Report Type: Spontaneous
  Country: FR (occurrence: FR)
  Receive Date: 20140326
  Receipt Date: 20140326
  Transmission Date: 20141002
  Serious: Yes (Other)
  Sender: FDA-Public Use
  Company Number: FR-ASTELLAS-2014EU002397

PATIENT
  Sex: Female

DRUGS (1)
  1. VESICARE [Suspect]
     Indication: URINARY INCONTINENCE
     Dosage: 5 MG, UID/QD
     Route: 048

REACTIONS (4)
  - Dementia [Recovered/Resolved]
  - Fatigue [Recovering/Resolving]
  - Bedridden [Recovering/Resolving]
  - Abasia [Recovering/Resolving]
